FAERS Safety Report 9579971 (Version 1)
Quarter: 2013Q3

REPORT INFORMATION
  Report Type: Spontaneous
  Country: US (occurrence: None)
  Receive Date: 20130916
  Receipt Date: 20130916
  Transmission Date: 20140515
  Serious: Yes (Hospitalization)
  Sender: FDA-Public Use
  Company Number: JPI-P-025389

PATIENT
  Age: 75 Year
  Sex: Female
  Weight: 86.18 kg

DRUGS (3)
  1. XYREM [Suspect]
     Indication: CATAPLEXY
     Route: 048
     Dates: start: 20090506
  2. UNSPECIFIED INGREDIENTS [Concomitant]
  3. MEDICATION FOR CHOLESTEROL [Concomitant]

REACTIONS (3)
  - Arthritis [None]
  - Pain [None]
  - Weight decreased [None]
